FAERS Safety Report 25816998 (Version 2)
Quarter: 2025Q4

REPORT INFORMATION
  Report Type: Spontaneous
  Country: US (occurrence: US)
  Receive Date: 20250918
  Receipt Date: 20251007
  Transmission Date: 20260117
  Serious: Yes (Other)
  Sender: MACLEODS
  Company Number: US-MACLEODS PHARMA-MAC2025055137

PATIENT

DRUGS (4)
  1. LEVOTHYROXINE [Suspect]
     Active Substance: LEVOTHYROXINE
     Indication: Hypothyroidism
     Dosage: NDC: 33342-399-10, GTIN: 00333342399106
     Route: 048
     Dates: start: 2025, end: 202509
  2. LEVOTHYROXINE [Suspect]
     Active Substance: LEVOTHYROXINE
     Route: 048
     Dates: start: 2025, end: 2025
  3. LEVOTHYROXINE [Suspect]
     Active Substance: LEVOTHYROXINE
     Dosage: NDC: 33342-399-10
     Route: 048
     Dates: start: 2025
  4. SERTRALINE [Concomitant]
     Active Substance: SERTRALINE HYDROCHLORIDE
     Indication: Product used for unknown indication
     Route: 065

REACTIONS (22)
  - Multiple organ dysfunction syndrome [Unknown]
  - Supraventricular tachycardia [Unknown]
  - Supraventricular tachyarrhythmia [Unknown]
  - Heart rate decreased [Unknown]
  - Swelling [Recovered/Resolved]
  - Pain [Recovered/Resolved]
  - Feeling cold [Unknown]
  - Oxygen saturation decreased [Unknown]
  - Myalgia [Recovered/Resolved]
  - Pharyngeal swelling [Recovered/Resolved]
  - Arthralgia [Recovered/Resolved]
  - Brain fog [Unknown]
  - Memory impairment [Unknown]
  - Constipation [Unknown]
  - Therapeutic response changed [Unknown]
  - Product substitution issue [Unknown]
  - Product solubility abnormal [Unknown]
  - Product measured potency issue [Unknown]
  - Drug ineffective [Unknown]
  - Incorrect dose administered by product [Unknown]
  - Product solubility abnormal [Unknown]
  - Product quality issue [Unknown]

NARRATIVE: CASE EVENT DATE: 20250801
